FAERS Safety Report 16994783 (Version 1)
Quarter: 2019Q4

REPORT INFORMATION
  Report Type: Other
  Country: NL (occurrence: NL)
  Receive Date: 20191105
  Receipt Date: 20191105
  Transmission Date: 20200122
  Serious: Yes (Other)
  Sender: FDA-Public Use
  Company Number: NL-ASPEN-GLO2016NL012400

PATIENT
  Sex: Female

DRUGS (1)
  1. TIOGUANINE [Suspect]
     Active Substance: THIOGUANINE ANHYDROUS
     Indication: INFLAMMATORY BOWEL DISEASE
     Route: 065

REACTIONS (3)
  - Off label use [Unknown]
  - Abortion spontaneous [Unknown]
  - Maternal exposure during pregnancy [Unknown]
